FAERS Safety Report 10029813 (Version 2)
Quarter: 2014Q1

REPORT INFORMATION
  Report Type: Spontaneous
  Country: US (occurrence: US)
  Receive Date: 20140323
  Receipt Date: 20140323
  Transmission Date: 20141002
  Serious: Yes (Disabling)
  Sender: FDA-Public Use
  Company Number: US-GE HEALTHCARE MEDICAL DIAGNOSTICS-OSCN-PR-0806S-0401

PATIENT
  Sex: Female

DRUGS (19)
  1. OMNISCAN [Suspect]
     Indication: ORAL NEOPLASM
     Dates: start: 20040506, end: 20040506
  2. OMNISCAN [Suspect]
     Indication: RETINAL ARTERY OCCLUSION
     Dates: start: 20050405, end: 20050405
  3. OMNISCAN [Suspect]
     Indication: CAROTID ARTERY STENOSIS
     Dates: start: 20050907, end: 20050907
  4. OMNISCAN [Suspect]
     Indication: CEREBRAL SMALL VESSEL ISCHAEMIC DISEASE
     Dates: start: 20070124, end: 20070124
  5. OMNISCAN [Suspect]
     Indication: TRANSIENT ISCHAEMIC ATTACK
     Dates: start: 20070125, end: 20070125
  6. OMNISCAN [Suspect]
     Indication: DIZZINESS
  7. OMNISCAN [Suspect]
     Indication: TRANSPLANT EVALUATION
  8. GADOLINIUM (UNSPECIFIED) [Suspect]
     Indication: DIZZINESS
     Route: 042
     Dates: start: 20021214, end: 20021214
  9. GADOLINIUM (UNSPECIFIED) [Suspect]
     Indication: HYPOAESTHESIA
     Route: 042
     Dates: start: 20080116, end: 20080116
  10. GADOLINIUM (UNSPECIFIED) [Suspect]
     Indication: PARAESTHESIA
  11. GADOLINIUM (UNSPECIFIED) [Suspect]
     Indication: ARTHRALGIA
  12. GADOLINIUM (UNSPECIFIED) [Suspect]
     Indication: PAIN IN EXTREMITY
  13. GADOLINIUM (UNSPECIFIED) [Suspect]
     Indication: PRODUCT USED FOR UNKNOWN INDICATION
  14. MAGNEVIST [Suspect]
     Indication: HYPOAESTHESIA
     Route: 042
     Dates: start: 20060806, end: 20060806
  15. MAGNEVIST [Suspect]
     Indication: PRODUCT USED FOR UNKNOWN INDICATION
     Route: 042
     Dates: start: 20060807, end: 20060807
  16. MAGNEVIST [Suspect]
     Indication: CAROTID ARTERY STENOSIS
     Route: 042
     Dates: start: 20060809, end: 20060809
  17. MAGNEVIST [Suspect]
     Indication: TRANSIENT ISCHAEMIC ATTACK
  18. MAGNEVIST [Suspect]
     Indication: MUSCULAR WEAKNESS
  19. EPOGEN [Concomitant]
     Dates: start: 20030407

REACTIONS (1)
  - Nephrogenic systemic fibrosis [Not Recovered/Not Resolved]
